FAERS Safety Report 10542830 (Version 1)
Quarter: 2014Q4

REPORT INFORMATION
  Report Type: Spontaneous
  Country: US (occurrence: None)
  Receive Date: 20141023
  Receipt Date: 20141023
  Transmission Date: 20150529
  Serious: Yes (Other)
  Sender: FDA-Public Use
  Company Number: 2014-US-013368

PATIENT
  Sex: Female

DRUGS (2)
  1. XYREM [Suspect]
     Active Substance: SODIUM OXYBATE
     Indication: CATAPLEXY
     Route: 048
     Dates: start: 200903, end: 2009
  2. XYREM [Suspect]
     Active Substance: SODIUM OXYBATE
     Indication: NARCOLEPSY
     Route: 048
     Dates: start: 200903, end: 2009

REACTIONS (16)
  - Hypertension [None]
  - Loss of consciousness [None]
  - Anxiety [None]
  - Oedema [None]
  - Nightmare [None]
  - Libido increased [None]
  - Depression [None]
  - Attention deficit/hyperactivity disorder [None]
  - Post-traumatic stress disorder [None]
  - Panic attack [None]
  - Headache [None]
  - Pericardial effusion [None]
  - Weight decreased [None]
  - Chronic obstructive pulmonary disease [None]
  - Gingival disorder [None]
  - Agoraphobia [None]
